FAERS Safety Report 15849446 (Version 1)
Quarter: 2019Q1

REPORT INFORMATION
  Report Type: Spontaneous
  Country: US (occurrence: US)
  Receive Date: 20190121
  Receipt Date: 20190121
  Transmission Date: 20190417
  Serious: Yes (Other)
  Sender: FDA-Public Use
  Company Number: US-ROCHE-2241855

PATIENT
  Age: 73 Year
  Sex: Female
  Weight: 79 kg

DRUGS (5)
  1. TECENTRIQ [Suspect]
     Active Substance: ATEZOLIZUMAB
     Indication: LUNG NEOPLASM MALIGNANT
     Route: 065
     Dates: start: 20181101, end: 20181101
  2. ESSIAC TEA [Concomitant]
  3. TURMERIC [Concomitant]
     Active Substance: HERBALS\TURMERIC
  4. GINGER. [Concomitant]
     Active Substance: GINGER
  5. BUTTERBUR [Concomitant]

REACTIONS (10)
  - Gait disturbance [Unknown]
  - Nausea [Unknown]
  - Thrombosis [Not Recovered/Not Resolved]
  - Renal pain [Unknown]
  - Urinary tract obstruction [Not Recovered/Not Resolved]
  - Frustration tolerance decreased [Unknown]
  - Feeling abnormal [Unknown]
  - Bone pain [Unknown]
  - Erythema [Recovering/Resolving]
  - Headache [Unknown]

NARRATIVE: CASE EVENT DATE: 20181207
